FAERS Safety Report 6127537-1 (Version None)
Quarter: 2009Q1

REPORT INFORMATION
  Report Type: 
  Country: None (occurrence: None)
  Receive Date: 20090319
  Receipt Date: 20090306
  Transmission Date: 20090719
  Serious: Yes (Hospitalization)
  Sender: FDA-Public Use
  Company Number: 2009AL001469

PATIENT
  Age: 58 Year
  Sex: Female

DRUGS (8)
  1. SPIRONOLACTONE [Suspect]
     Indication: OEDEMA
     Dosage: 50 MG;QD
     Dates: start: 20081006
  2. FUROSEMIDE [Concomitant]
  3. CHLORTHALIDONE [Concomitant]
  4. TRACLEER [Concomitant]
  5. VERAPAMIL [Concomitant]
  6. ATARAX [Concomitant]
  7. REVATIO [Concomitant]
  8. ACENOCOUMAROL [Concomitant]

REACTIONS (1)
  - URTICARIA [None]
